FAERS Safety Report 5770900-9 (Version None)
Quarter: 2008Q2

REPORT INFORMATION
  Report Type: 
  Country: None (occurrence: None)
  Receive Date: 20080613
  Receipt Date: 20080519
  Transmission Date: 20081010
  Serious: No
  Sender: FDA-Public Use
  Company Number: US-ABBOTT-08P-163-0452517-00

PATIENT
  Sex: Female
  Weight: 59.02 kg

DRUGS (3)
  1. HUMIRA [Suspect]
     Indication: PSORIASIS
     Dosage: 40MG EVERY OTHER WEEK
     Route: 058
     Dates: start: 20070901
  2. LEXAPRIL [Concomitant]
     Indication: ANXIETY
     Dosage: 20MG EVERYDAY
     Route: 048
     Dates: start: 20060101
  3. OVULEN 50 [Concomitant]
     Indication: CONTRACEPTION
     Route: 048
     Dates: start: 20070101

REACTIONS (1)
  - ACCIDENTAL EXPOSURE [None]
